FAERS Safety Report 24827640 (Version 1)
Quarter: 2025Q1

REPORT INFORMATION
  Report Type: Report from Study
  Country: KR (occurrence: KR)
  Receive Date: 20250109
  Receipt Date: 20250109
  Transmission Date: 20250408
  Serious: Yes (Hospitalization)
  Sender: JAZZ
  Company Number: KR-BR-2024-0185

PATIENT
  Age: 84 Year
  Sex: Male
  Weight: 77 kg

DRUGS (12)
  1. LURBINECTEDIN [Suspect]
     Active Substance: LURBINECTEDIN
     Indication: Small cell lung cancer
     Dosage: 2.6 MILLIGRAM/SQ. METER, Q3W
     Route: 042
     Dates: start: 20230901, end: 20230901
  2. AGIO [Concomitant]
     Indication: Product used for unknown indication
     Dates: start: 20221101, end: 20230910
  3. ELIQUIS [Concomitant]
     Active Substance: APIXABAN
     Indication: Product used for unknown indication
     Dates: start: 20220917, end: 20230910
  4. COUGH CONTROL [Concomitant]
     Active Substance: DEXTROMETHORPHAN HYDROBROMIDE
     Indication: Product used for unknown indication
     Dates: start: 20230727, end: 20230910
  5. MAGNESIUM OXIDE [Concomitant]
     Active Substance: MAGNESIUM OXIDE
     Indication: Product used for unknown indication
     Dates: start: 20230630, end: 20230910
  6. HARNAL [Concomitant]
     Active Substance: TAMSULOSIN HYDROCHLORIDE
     Dates: start: 20221021, end: 20230910
  7. FINASTERIDE [Concomitant]
     Active Substance: FINASTERIDE
     Indication: Product used for unknown indication
     Dates: start: 20221021, end: 20230910
  8. FUROSEMIDE [Concomitant]
     Active Substance: FUROSEMIDE
     Indication: Product used for unknown indication
     Dates: start: 20220911, end: 20230910
  9. NORVASC [Concomitant]
     Active Substance: AMLODIPINE BESYLATE
     Indication: Product used for unknown indication
     Dates: start: 20220911, end: 20230910
  10. KANARB [Concomitant]
     Indication: Product used for unknown indication
     Dates: start: 20220911, end: 20230910
  11. ALOXI [Concomitant]
     Active Substance: PALONOSETRON HYDROCHLORIDE
     Indication: Product used for unknown indication
     Dates: start: 20230901, end: 20230901
  12. YUHAN DEXAMETHASONE DISODIUM PHOSPHATE [Concomitant]
     Indication: Product used for unknown indication
     Dates: start: 20230901, end: 20230901

REACTIONS (1)
  - Platelet count decreased [Not Recovered/Not Resolved]

NARRATIVE: CASE EVENT DATE: 20230910
